FAERS Safety Report 6066013-1 (Version None)
Quarter: 2009Q1

REPORT INFORMATION
  Report Type: 
  Country: None (occurrence: None)
  Receive Date: 20090130
  Receipt Date: 20090122
  Transmission Date: 20090719
  Serious: Yes (Other)
  Sender: FDA-Public Use
  Company Number: 2009AP000314

PATIENT
  Age: 89 Year
  Sex: Female

DRUGS (17)
  1. ALENDRONATE SODIUM [Suspect]
     Dosage: 1 DF;QW
  2. AMOXICILLIN [Concomitant]
  3. BENDROFLUMETHIAZIDE (BENDROFLUMETHIAZIDE) [Concomitant]
  4. BETAMETHASONE VALERATE [Concomitant]
  5. CALCIUM CARBONATE (CALCIUM CARBONATE) [Concomitant]
  6. POTASSIUM BICARBONATE (POTASSIUM BICARBONATE) [Concomitant]
  7. SODIUM ALGINATE (SODIUM ALGINATE) [Concomitant]
  8. HYDROXYZINE HCL [Concomitant]
  9. LORATADINE [Concomitant]
  10. PREDNISOLONE [Concomitant]
  11. SALBUTAMOL (SALBUTAMOL) [Concomitant]
  12. THEOPHYLLINE [Concomitant]
  13. BUDESONIDE [Concomitant]
  14. FORMOTEROL FUMARATE (FORMOTEROL FUMARATE) [Concomitant]
  15. TIOTROPIUM BROMIDE (TIOTROPIUM BROMIDE) [Concomitant]
  16. TRAMADOL HCL [Concomitant]
  17. SALBUTAMOL SULFATE (SALBUTAMOL SULFATE) [Concomitant]

REACTIONS (2)
  - LIP SWELLING [None]
  - PAIN [None]
